FAERS Safety Report 6892374-7 (Version None)
Quarter: 2010Q3

REPORT INFORMATION
  Report Type: 
  Country: None (occurrence: None)
  Receive Date: 20100731
  Receipt Date: 20080610
  Transmission Date: 20110219
  Serious: No
  Sender: FDA-Public Use
  Company Number: US-PFIZER INC-2008040103

PATIENT
  Sex: Male
  Weight: 102.27 kg

DRUGS (5)
  1. CAVERJECT [Suspect]
     Indication: ERECTILE DYSFUNCTION
     Dates: start: 20071201
  2. LISINOPRIL [Concomitant]
  3. CRESTOR [Concomitant]
  4. INSULIN [Concomitant]
  5. ZETIA [Concomitant]

REACTIONS (1)
  - DRUG INEFFECTIVE [None]
